FAERS Safety Report 13387454 (Version 1)
Quarter: 2017Q1

REPORT INFORMATION
  Report Type: Spontaneous
  Country: FR (occurrence: FR)
  Receive Date: 20170330
  Receipt Date: 20170330
  Transmission Date: 20170429
  Serious: Yes (Hospitalization)
  Sender: FDA-Public Use
  Company Number: ALCN2017FR002220

PATIENT
  Age: 9 Month
  Sex: Female
  Weight: 8.45 kg

DRUGS (1)
  1. ISOPTO HOMATROPINE [Suspect]
     Active Substance: HOMATROPINE HYDROBROMIDE
     Indication: MYDRIASIS
     Dosage: 1 GTT, EVERY 20 MINUTES, 2 HOURS BEFORE EXAM
     Route: 047
     Dates: start: 20120208, end: 20120208

REACTIONS (1)
  - Malaise [Recovered/Resolved]

NARRATIVE: CASE EVENT DATE: 20120209
